FAERS Safety Report 13770097 (Version 1)
Quarter: 2017Q3

REPORT INFORMATION
  Report Type: Spontaneous
  Country: FR (occurrence: FR)
  Receive Date: 20170719
  Receipt Date: 20170719
  Transmission Date: 20171127
  Serious: Yes (Hospitalization)
  Sender: FDA-Public Use
  Company Number: FR-PFIZER INC-605391

PATIENT
  Age: 78 Year
  Sex: Female

DRUGS (17)
  1. BETADINE [Suspect]
     Active Substance: POVIDONE-IODINE
     Dosage: UNK
     Route: 067
     Dates: start: 20100115, end: 20100115
  2. EPHEDRINE. [Suspect]
     Active Substance: EPHEDRINE
     Indication: ANAESTHESIA PROCEDURE
     Dosage: UNK
     Route: 042
     Dates: start: 20100115, end: 20100115
  3. LACTATED RINGERS [Concomitant]
     Active Substance: CALCIUM CHLORIDE\POTASSIUM CHLORIDE\SODIUM CHLORIDE\SODIUM LACTATE
     Indication: PRODUCT USED FOR UNKNOWN INDICATION
     Dosage: UNK
     Dates: start: 20100115
  4. PROPOFOL. [Suspect]
     Active Substance: PROPOFOL
     Indication: ANAESTHESIA PROCEDURE
     Dosage: 10 MG/ML
     Route: 042
     Dates: start: 20100115, end: 20100115
  5. DROLEPTAN [Suspect]
     Active Substance: DROPERIDOL
     Indication: ANAESTHESIA PROCEDURE
     Dosage: 1.25 MG, 1 DAY
     Route: 042
     Dates: start: 20100115, end: 20100115
  6. SALINE /00075401/ [Concomitant]
     Active Substance: SODIUM CHLORIDE
     Indication: PRODUCT USED FOR UNKNOWN INDICATION
     Dosage: UNK
     Dates: start: 20100115
  7. NORMACOL [Suspect]
     Active Substance: HERBALS\KARAYA GUM
     Indication: PREMEDICATION
     Dosage: UNK
     Route: 054
     Dates: start: 20100114, end: 20100114
  8. DESFLURANE. [Suspect]
     Active Substance: DESFLURANE
     Indication: ANAESTHESIA PROCEDURE
     Dosage: UNK
     Route: 055
     Dates: start: 20100115, end: 20100115
  9. ACUPAN [Suspect]
     Active Substance: NEFOPAM HYDROCHLORIDE
     Indication: ANAESTHESIA PROCEDURE
     Dosage: UNK
     Route: 042
     Dates: start: 20100115, end: 20100117
  10. NAROPEINE [Suspect]
     Active Substance: ROPIVACAINE HYDROCHLORIDE
     Indication: ANAESTHESIA PROCEDURE
     Dosage: 15 MG,LUMBAR INFUSION
     Route: 050
     Dates: start: 20100115, end: 20100115
  11. SUFENTA [Suspect]
     Active Substance: SUFENTANIL CITRATE
     Indication: ANAESTHESIA PROCEDURE
     Dosage: UNK
     Route: 042
     Dates: start: 20100115, end: 20100115
  12. ATROPINE SULFATE. [Suspect]
     Active Substance: ATROPINE SULFATE
     Indication: ANAESTHESIA PROCEDURE
     Dosage: 1 MG, 1 DAY
     Route: 042
     Dates: start: 20100115, end: 20100115
  13. BETADINE [Suspect]
     Active Substance: POVIDONE-IODINE
     Indication: PREOPERATIVE CARE
     Dosage: UNK
     Route: 003
     Dates: start: 20100114, end: 20100115
  14. NEURONTIN [Concomitant]
     Active Substance: GABAPENTIN
     Indication: PREMEDICATION
     Dosage: 600 MG, UNK
     Dates: start: 20100114, end: 20100115
  15. ATRACURIUM BESILATE [Suspect]
     Active Substance: ATRACURIUM BESYLATE
     Indication: ANAESTHESIA PROCEDURE
     Dosage: UNK
     Route: 042
     Dates: start: 20100115, end: 20100115
  16. PERFALGAN [Suspect]
     Active Substance: ACETAMINOPHEN
     Indication: ANAESTHESIA PROCEDURE
     Dosage: 1 G, 3 DAYS
     Route: 042
     Dates: start: 20100115, end: 20100117
  17. AUGMENTIN [Suspect]
     Active Substance: AMOXICILLIN\CLAVULANATE POTASSIUM
     Indication: ANAESTHESIA PROCEDURE
     Dosage: 2 G, UNK
     Route: 042
     Dates: start: 20100115, end: 20100115

REACTIONS (2)
  - Oliguria [Recovered/Resolved]
  - Acute kidney injury [Recovering/Resolving]

NARRATIVE: CASE EVENT DATE: 20100116
